FAERS Safety Report 5259335-5 (Version None)
Quarter: 2007Q1

REPORT INFORMATION
  Report Type: 
  Country: None (occurrence: None)
  Receive Date: 20070302
  Receipt Date: 20070221
  Transmission Date: 20070707
  Serious: Yes (Disabling)
  Sender: FDA-Public Use
  Company Number: 2007-155054-NL

PATIENT
  Age: 21 Month
  Sex: Female

DRUGS (9)
  1. VECURONIUM BROMIDE [Suspect]
     Indication: LIFE SUPPORT
     Dosage: NI INTRAVENOUS DRIP
     Route: 041
     Dates: start: 20000919, end: 20030101
  2. MIDAZOLAM HCL [Concomitant]
  3. FUROSEMIDE [Concomitant]
  4. POTASSIUM CANRENOATE [Concomitant]
  5. DIGOXIN [Concomitant]
  6. FAMOTIDINE [Concomitant]
  7. DEXAMETHASONE [Concomitant]
  8. CEPHEM ANTIBIOTICS [Concomitant]
  9. CARBENICILLIN [Concomitant]

REACTIONS (2)
  - DEAFNESS [None]
  - HYPOACUSIS [None]
